FAERS Safety Report 8629400 (Version 3)
Quarter: 2012Q4

REPORT INFORMATION
  Report Type: 
  Country: DE (occurrence: JP)
  Receive Date: 20120622
  Receipt Date: 20120925
  Transmission Date: 20130627
  Serious: Yes (Hospitalization)
  Sender: FDA-Public Use
  Company Number: JP-BRISTOL-MYERS SQUIBB COMPANY-16639601

PATIENT
  Age: 82 Year
  Sex: Male

DRUGS (4)
  1. METGLUCO [Suspect]
     Indication: DIABETES MELLITUS
     Dosage: Interrupted on 15May2012 and restarted-ong
     Route: 048
     Dates: start: 201203
  2. JANUVIA [Suspect]
     Indication: DIABETES MELLITUS
     Route: 048
     Dates: start: 201203, end: 20120515
  3. DONEPEZIL [Concomitant]
     Indication: DEMENTIA
     Route: 048
     Dates: start: 20120515
  4. RENIVEZE [Concomitant]
     Indication: DIABETES MELLITUS
     Route: 048
     Dates: start: 201203

REACTIONS (1)
  - Aplasia pure red cell [Not Recovered/Not Resolved]
